FAERS Safety Report 7790297-2 (Version None)
Quarter: 2011Q3

REPORT INFORMATION
  Report Type: 
  Country: None (occurrence: None)
  Receive Date: 20110930
  Receipt Date: 20110705
  Transmission Date: 20111222
  Serious: Yes (Other)
  Sender: FDA-Public Use
  Company Number: US-ASTRAZENECA-2011SE39986

PATIENT
  Age: 87 Year
  Sex: Female
  Weight: 63.9 kg

DRUGS (3)
  1. ARIMIDEX [Suspect]
     Indication: NEOPLASM MALIGNANT
     Route: 048
  2. GABAPENTIN [Suspect]
     Indication: NEUROPATHY PERIPHERAL
     Dosage: 4 CAPSULES DAILY
     Route: 048
     Dates: end: 20110101
  3. GABAPENTIN [Suspect]
     Dosage: 2 CAPSULES DAILY
     Route: 048
     Dates: start: 20110101

REACTIONS (2)
  - OSTEOPOROSIS [None]
  - INCORRECT DOSE ADMINISTERED [None]
